FAERS Safety Report 8489403-6 (Version None)
Quarter: 2012Q3

REPORT INFORMATION
  Report Type: 
  Country: None (occurrence: None)
  Receive Date: 20120705
  Receipt Date: 20120625
  Transmission Date: 20120928
  Serious: Yes (Other)
  Sender: FDA-Public Use
  Company Number: US-ELI_LILLY_AND_COMPANY-US201106004797

PATIENT
  Sex: Female

DRUGS (3)
  1. FORTEO [Suspect]
     Dosage: 20 UG, QD
     Dates: start: 20110601
  2. FORTEO [Suspect]
     Dosage: 20 UG, QD
     Dates: start: 20110601
  3. FORTEO [Suspect]
     Indication: OSTEOPOROSIS
     Dosage: 20 UG, QD
     Dates: start: 20110601

REACTIONS (6)
  - WEIGHT INCREASED [None]
  - FALL [None]
  - INJECTION SITE HAEMATOMA [None]
  - HIP FRACTURE [None]
  - BACK PAIN [None]
  - FATIGUE [None]
